FAERS Safety Report 10395508 (Version 1)
Quarter: 2014Q3

REPORT INFORMATION
  Report Type: Spontaneous
  Country: US (occurrence: None)
  Receive Date: 20140815
  Receipt Date: 20140815
  Transmission Date: 20150326
  Serious: Yes (Hospitalization)
  Sender: FDA-Public Use
  Company Number: None

PATIENT
  Age: 65 Year
  Sex: Female
  Weight: 69.2 kg

DRUGS (1)
  1. CYTARABINE 2600 MG [Suspect]
     Active Substance: CYTARABINE
     Dates: end: 20140811

REACTIONS (3)
  - Dysarthria [None]
  - Hemiparesis [None]
  - Platelet count decreased [None]

NARRATIVE: CASE EVENT DATE: 20140812
